FAERS Safety Report 17164568 (Version 1)
Quarter: 2019Q4

REPORT INFORMATION
  Report Type: Spontaneous
  Country: US (occurrence: US)
  Receive Date: 20191217
  Receipt Date: 20191217
  Transmission Date: 20200122
  Serious: No
  Sender: FDA-Public Use
  Company Number: US-PERRIGO-19US011076

PATIENT
  Sex: Male
  Weight: 90.7 kg

DRUGS (2)
  1. GUAIFENESIN-DEXTROMETHORPHAN HYDROBROMIDE [Suspect]
     Active Substance: DEXTROMETHORPHAN HYDROBROMIDE\GUAIFENESIN
     Indication: PROPHYLAXIS
     Dosage: 1 TABLET, EVERY 12 HOURS
     Route: 048
     Dates: end: 201909
  2. GUAIFENESIN-DEXTROMETHORPHAN HYDROBROMIDE [Suspect]
     Active Substance: DEXTROMETHORPHAN HYDROBROMIDE\GUAIFENESIN
     Dosage: 1 TABLET, TWICE WITHIN 4 HOURS
     Route: 048
     Dates: start: 20190910, end: 20190910

REACTIONS (2)
  - Incorrect product administration duration [Recovered/Resolved]
  - Off label use [Recovered/Resolved]
